FAERS Safety Report 18501129 (Version 2)
Quarter: 2020Q4

REPORT INFORMATION
  Report Type: Report from Study
  Country: US (occurrence: US)
  Receive Date: 20201113
  Receipt Date: 20201118
  Transmission Date: 20210114
  Serious: No
  Sender: FDA-Public Use
  Company Number: US-SA-2020SA319783

PATIENT

DRUGS (1)
  1. DUPILUMAB [Suspect]
     Active Substance: DUPILUMAB
     Indication: ASTHMA
     Dosage: 300 MG, 1X
     Route: 058
     Dates: start: 20201110, end: 20201110

REACTIONS (7)
  - Insomnia [Unknown]
  - Eye irritation [Recovering/Resolving]
  - Chest discomfort [Unknown]
  - Mouth swelling [Recovering/Resolving]
  - Incorrect dose administered [Unknown]
  - Sensation of foreign body [Unknown]
  - Respiratory tract congestion [Not Recovered/Not Resolved]

NARRATIVE: CASE EVENT DATE: 20201110
